FAERS Safety Report 22002465 (Version 1)
Quarter: 2023Q1

REPORT INFORMATION
  Report Type: Spontaneous
  Country: US (occurrence: US)
  Receive Date: 20230217
  Receipt Date: 20230217
  Transmission Date: 20230417
  Serious: No
  Sender: FDA-Public Use
  Company Number: US-VALIDUS PHARMACEUTICALS LLC-US-VDP-2022-014989

PATIENT

DRUGS (3)
  1. LASIX [Suspect]
     Active Substance: FUROSEMIDE
     Indication: Product used for unknown indication
     Dosage: UNK
     Route: 065
  2. LASIX [Suspect]
     Active Substance: FUROSEMIDE
     Dosage: 20 MILLIGRAM
     Route: 065
  3. LASIX [Suspect]
     Active Substance: FUROSEMIDE
     Dosage: 40 MILLIGRAM
     Route: 065

REACTIONS (2)
  - Therapeutic product effect decreased [Unknown]
  - Muscle spasms [Unknown]
